FAERS Safety Report 18244431 (Version 3)
Quarter: 2020Q4

REPORT INFORMATION
  Report Type: Spontaneous
  Country: US (occurrence: US)
  Receive Date: 20200908
  Receipt Date: 20201002
  Transmission Date: 20210113
  Serious: Yes (Hospitalization, Other)
  Sender: FDA-Public Use
  Company Number: US-JNJFOC-A-NJ2019-197045

PATIENT
  Age: 59 Year
  Sex: Female
  Weight: 94.43 kg

DRUGS (3)
  1. OPSUMIT [Suspect]
     Active Substance: MACITENTAN
     Indication: PULMONARY ARTERIAL HYPERTENSION
     Dosage: 10 MG, QD
     Route: 048
  2. TREPROSTINIL. [Concomitant]
     Active Substance: TREPROSTINIL
     Dosage: 50 NG/KG PER MIN
  3. SILDENAFIL CITRATE. [Concomitant]
     Active Substance: SILDENAFIL CITRATE

REACTIONS (7)
  - Rectal cancer stage III [Unknown]
  - Surgery [Unknown]
  - Cancer surgery [Unknown]
  - Lymphadenectomy [Unknown]
  - Dizziness [Unknown]
  - Neoplasm malignant [Unknown]
  - Dehydration [Unknown]
